FAERS Safety Report 5236845-8 (Version None)
Quarter: 2007Q1

REPORT INFORMATION
  Report Type: 
  Country: None (occurrence: None)
  Receive Date: 20070213
  Receipt Date: 20070201
  Transmission Date: 20070707
  Serious: Yes (Other)
  Sender: FDA-Public Use
  Company Number: FR-JNJFOC-20061206129

PATIENT
  Sex: Male
  Weight: 95 kg

DRUGS (3)
  1. RISPERDAL [Suspect]
     Indication: SCHIZOPHRENIA
     Route: 048
  2. CLOZAPINE [Suspect]
     Indication: SCHIZOPHRENIA
     Dates: start: 20010101, end: 20061217
  3. LOXAPAC [Concomitant]
     Indication: PSYCHOTIC DISORDER

REACTIONS (1)
  - CARDIOMYOPATHY [None]
